FAERS Safety Report 7181630-3 (Version None)
Quarter: 2010Q4

REPORT INFORMATION
  Report Type: 
  Country: None (occurrence: None)
  Receive Date: 20101221
  Receipt Date: 20100427
  Transmission Date: 20110411
  Serious: No
  Sender: FDA-Public Use
  Company Number: US-AMGEN-KDL408753

PATIENT

DRUGS (9)
  1. ENBREL [Suspect]
     Indication: RHEUMATOID ARTHRITIS
     Dosage: 50 MG, QWK
  2. DULOXETIME HYDROCHLORIDE [Concomitant]
     Dosage: 30 MG, UNK
  3. CARVEDILOL [Concomitant]
     Dosage: 20 MG, UNK
  4. AMLODIPINE BESYLATE [Concomitant]
     Dosage: 5 MG, UNK
  5. MESALAZINE [Concomitant]
     Dosage: UNK UNK, UNK
  6. DEXLANSOPRAZOLE [Concomitant]
     Dosage: UNK UNK, UNK
  7. METHOTREXATE [Concomitant]
     Dosage: UNK UNK, UNK
  8. PREDNISONE [Concomitant]
     Dosage: UNK UNK, PRN
  9. MOMETASONE FUROATE [Concomitant]
     Dosage: UNK UNK, UNK

REACTIONS (2)
  - BRONCHITIS [None]
  - INFECTION [None]
